FAERS Safety Report 10202367 (Version 3)
Quarter: 2020Q1

REPORT INFORMATION
  Report Type: Report from Study
  Country: US (occurrence: US)
  Receive Date: 20140528
  Receipt Date: 20200212
  Transmission Date: 20200409
  Serious: Yes (Disabling, Other)
  Sender: FDA-Public Use
  Company Number: US-SA-2013SA106363

PATIENT
  Age: 63 Year
  Sex: Female

DRUGS (15)
  1. VITAMIN B2 [RIBOFLAVIN] [Concomitant]
  2. CRANBERRY [VACCINIUM SPP.] [Concomitant]
  3. ATORVASTATIN [Concomitant]
     Active Substance: ATORVASTATIN
  4. TERIFLUNOMIDE. [Suspect]
     Active Substance: TERIFLUNOMIDE
     Indication: MULTIPLE SCLEROSIS
     Dosage: 7 MG,UNK
     Route: 048
     Dates: start: 20130514
  5. MULTIVITAMINS [VITAMINS NOS] [Concomitant]
     Active Substance: VITAMINS
  6. MAGNESIUM [Concomitant]
     Active Substance: MAGNESIUM
  7. COQ10 [UBIDECARENONE] [Concomitant]
     Active Substance: UBIDECARENONE
  8. AMPYRA [Concomitant]
     Active Substance: DALFAMPRIDINE
  9. CALCIUM [Concomitant]
     Active Substance: CALCIUM
  10. BACLOFEN. [Concomitant]
     Active Substance: BACLOFEN
  11. DICLOFENAC [Concomitant]
     Active Substance: DICLOFENAC
  12. TERIFLUNOMIDE. [Suspect]
     Active Substance: TERIFLUNOMIDE
     Dosage: 14 MG,QD
     Route: 048
  13. OMEPRAZOLE. [Concomitant]
     Active Substance: OMEPRAZOLE
  14. ACTONEL [Concomitant]
     Active Substance: RISEDRONATE SODIUM
  15. NORTRIPTYLINE [Concomitant]
     Active Substance: NORTRIPTYLINE

REACTIONS (6)
  - Gait disturbance [Unknown]
  - Peripheral swelling [Unknown]
  - Bone density decreased [Unknown]
  - Limb discomfort [Unknown]
  - Gait inability [Unknown]
  - Fall [Unknown]
